FAERS Safety Report 10375683 (Version 1)
Quarter: 2014Q3

REPORT INFORMATION
  Report Type: Spontaneous
  Country: US (occurrence: US)
  Receive Date: 20140811
  Receipt Date: 20140811
  Transmission Date: 20150326
  Serious: No
  Sender: FDA-Public Use
  Company Number: US-ENDO PHARMACEUTICALS INC.-LISI20140025

PATIENT
  Age: 73 Year
  Sex: Female

DRUGS (2)
  1. LISINOPRIL. [Concomitant]
     Active Substance: LISINOPRIL
     Indication: RENAL IMPAIRMENT
     Route: 048
     Dates: start: 2008, end: 20140325
  2. LISINOPRIL TABLETS 5MG [Suspect]
     Active Substance: LISINOPRIL
     Indication: RENAL IMPAIRMENT
     Route: 048
     Dates: start: 20140326, end: 20140328

REACTIONS (1)
  - Oliguria [Unknown]

NARRATIVE: CASE EVENT DATE: 20140328
